FAERS Safety Report 17915478 (Version 2)
Quarter: 2020Q3

REPORT INFORMATION
  Report Type: Spontaneous
  Country: US (occurrence: US)
  Receive Date: 20200619
  Receipt Date: 20200703
  Transmission Date: 20201103
  Serious: Yes (Life-Threatening, Hospitalization, Other)
  Sender: FDA-Public Use
  Company Number: US-DRREDDYS-USA/USA/20/0124087

PATIENT
  Age: 64 Year
  Sex: Female

DRUGS (6)
  1. HYDROMORPHONE [Concomitant]
     Active Substance: HYDROMORPHONE
     Indication: PAIN MANAGEMENT
     Dosage: HYDROMORPHONE 0.5 MG IV Q3H PRN
     Route: 042
  2. PANTOPRAZOLE SODIUM DR TABLETS 20MG AND  40MG [Concomitant]
     Active Substance: PANTOPRAZOLE SODIUM
     Indication: PROPHYLAXIS
  3. TRAMADOL. [Concomitant]
     Active Substance: TRAMADOL
     Dosage: TRAMADOL 50 MG Q3H PRN
  4. ACETYLSALICYLIC ACID [Suspect]
     Active Substance: ASPIRIN
     Indication: THROMBOSIS PROPHYLAXIS
     Route: 048
     Dates: start: 20180823, end: 20180824
  5. PARACETAMOL [Concomitant]
     Active Substance: ACETAMINOPHEN
     Indication: PAIN MANAGEMENT
  6. TRAMADOL. [Concomitant]
     Active Substance: TRAMADOL
     Indication: PAIN MANAGEMENT
     Dosage: TRAMADOL 25 MG Q3H PRN

REACTIONS (3)
  - Pulmonary embolism [Unknown]
  - Therapeutic response decreased [Unknown]
  - Drug interaction [Unknown]
